FAERS Safety Report 12485223 (Version 9)
Quarter: 2017Q2

REPORT INFORMATION
  Report Type: Report from Study
  Country: US (occurrence: US)
  Receive Date: 20160621
  Receipt Date: 20170418
  Transmission Date: 20170830
  Serious: Yes (Other)
  Sender: FDA-Public Use
  Company Number: GXBR2016US001780

PATIENT
  Age: 24 Year
  Sex: Male

DRUGS (1)
  1. GLATOPA [Suspect]
     Active Substance: GLATIRAMER ACETATE
     Indication: MULTIPLE SCLEROSIS
     Dosage: 20 MG, QD
     Route: 065
     Dates: start: 20160422

REACTIONS (30)
  - Chest pain [Recovered/Resolved]
  - Pain [Unknown]
  - Asthenia [Recovering/Resolving]
  - Hyperhidrosis [Recovered/Resolved]
  - Injection site haemorrhage [Not Recovered/Not Resolved]
  - Immediate post-injection reaction [Recovered/Resolved]
  - Flushing [Not Recovered/Not Resolved]
  - Feeling hot [Recovered/Resolved]
  - Anal incontinence [Recovered/Resolved]
  - Head discomfort [Recovered/Resolved]
  - Skin discolouration [Recovering/Resolving]
  - Incorrect dose administered [Unknown]
  - Injection site vesicles [Not Recovered/Not Resolved]
  - Injection site erythema [Not Recovered/Not Resolved]
  - Excessive skin [Not Recovered/Not Resolved]
  - Cold sweat [Recovered/Resolved]
  - Blood pressure increased [Recovered/Resolved]
  - Insomnia [Recovering/Resolving]
  - Flushing [Recovered/Resolved]
  - Crying [Unknown]
  - Dizziness [Not Recovered/Not Resolved]
  - Loss of consciousness [Recovering/Resolving]
  - Hair colour changes [Not Recovered/Not Resolved]
  - Injection site bruising [Not Recovered/Not Resolved]
  - Weight decreased [Not Recovered/Not Resolved]
  - Pyrexia [Unknown]
  - Immediate post-injection reaction [Recovered/Resolved]
  - Dyspnoea [Recovered/Resolved]
  - Blood pressure decreased [Recovered/Resolved]
  - Injection site mass [Not Recovered/Not Resolved]

NARRATIVE: CASE EVENT DATE: 20160422
